FAERS Safety Report 8512352-1 (Version None)
Quarter: 2012Q3

REPORT INFORMATION
  Report Type: 
  Country: None (occurrence: None)
  Receive Date: 20120716
  Receipt Date: 20120711
  Transmission Date: 20120928
  Serious: Yes (Other)
  Sender: FDA-Public Use
  Company Number: PHHO2011NL06364

PATIENT
  Sex: Female
  Weight: 97 kg

DRUGS (4)
  1. GILENYA [Suspect]
     Indication: MULTIPLE SCLEROSIS
     Dosage: 0.5 MG, QD
     Route: 048
     Dates: start: 20110315, end: 20110409
  2. MOVICOLON [Concomitant]
     Indication: CONSTIPATION
  3. METHYLPREDNISOLONE [Concomitant]
     Indication: MULTIPLE SCLEROSIS RELAPSE
     Dosage: UNK
     Dates: start: 20110405
  4. DURATEARS [Concomitant]
     Indication: DRY EYE
     Dosage: UNK
     Dates: start: 20110405

REACTIONS (2)
  - EPILEPSY [None]
  - DISEASE PROGRESSION [None]
